FAERS Safety Report 15792016 (Version 1)
Quarter: 2019Q1

REPORT INFORMATION
  Report Type: Spontaneous
  Country: ES (occurrence: ES)
  Receive Date: 20190106
  Receipt Date: 20190106
  Transmission Date: 20190417
  Serious: Yes (Hospitalization, Other)
  Sender: FDA-Public Use
  Company Number: ES-AMGEN-ESPSP2011057187

PATIENT
  Age: 51 Year
  Sex: Male
  Weight: 88.3 kg

DRUGS (11)
  1. RAMIPRIL ALTER [Concomitant]
     Active Substance: RAMIPRIL
     Dosage: UNK
  2. GEMFIBROZIL. [Concomitant]
     Active Substance: GEMFIBROZIL
     Dosage: UNK
  3. ENBREL [Suspect]
     Active Substance: ETANERCEPT
     Indication: RHEUMATOID ARTHRITIS
     Dosage: 50 MG, QWK
     Route: 058
     Dates: start: 20110330, end: 20110330
  4. URBASON [Concomitant]
     Active Substance: METHYLPREDNISOLONE
     Dosage: UNK
  5. CEMIDON B6 [Concomitant]
     Active Substance: ISONIAZID\PYRIDOXINE HYDROCHLORIDE
  6. CEMIDON [Concomitant]
     Active Substance: ISONIAZID
     Dosage: UNK
  7. RAMIPRIL. [Concomitant]
     Active Substance: RAMIPRIL
     Dosage: UNK
  8. ARAVA [Concomitant]
     Active Substance: LEFLUNOMIDE
     Dosage: UNK
  9. OMEPRAZOL [Concomitant]
     Active Substance: OMEPRAZOLE
     Dosage: UNK
  10. GEMFIBROZILO STADA [Concomitant]
     Dosage: UNK
  11. OMEPRAZOL ^RATIOPHARM^ [Concomitant]
     Dosage: UNK

REACTIONS (1)
  - Urticaria [Recovered/Resolved]

NARRATIVE: CASE EVENT DATE: 2011
